FAERS Safety Report 16398592 (Version 3)
Quarter: 2019Q3

REPORT INFORMATION
  Report Type: Report from Study
  Country: AU (occurrence: AU)
  Receive Date: 20190606
  Receipt Date: 20190905
  Transmission Date: 20191004
  Serious: Yes (Hospitalization)
  Sender: FDA-Public Use
  Company Number: AU-PFIZER INC-2019238796

PATIENT
  Age: 60 Year
  Sex: Male
  Weight: 81.4 kg

DRUGS (10)
  1. DAUNORUBICIN [Suspect]
     Active Substance: DAUNORUBICIN
     Indication: ACUTE MYELOID LEUKAEMIA
     Dosage: 121 MG, DAILY BY CONTINUOUS INFUSION
     Route: 041
     Dates: start: 20190417, end: 20190419
  2. POTASSIUM CHLORIDE. [Concomitant]
     Active Substance: POTASSIUM CHLORIDE
     Indication: BRUGADA SYNDROME
     Dosage: 600 MG, 1X/DAY
     Route: 048
     Dates: start: 20190502
  3. CYTARABINE. [Suspect]
     Active Substance: CYTARABINE
     Dosage: 201 MG, DAILY BY CONTINUOUS INFUSION
     Route: 041
     Dates: start: 20190417, end: 20190423
  4. MAGNESIUM ASPARTATE [Concomitant]
     Active Substance: MAGNESIUM ASPARTATE
     Indication: BRUGADA SYNDROME
     Dosage: 1 G, 2X/DAY
     Route: 048
     Dates: start: 20190513
  5. FAMCICLOVIR. [Concomitant]
     Active Substance: FAMCICLOVIR
     Indication: ANTIVIRAL PROPHYLAXIS
     Dosage: 500 MG, 2X/DAY
     Route: 048
     Dates: start: 20190404
  6. SOTALOL. [Concomitant]
     Active Substance: SOTALOL
     Indication: ARRHYTHMIA PROPHYLAXIS
     Dosage: 80 MG, 2X/DAY
     Route: 048
     Dates: start: 20190427
  7. PANTOPRAZOLE [Concomitant]
     Active Substance: PANTOPRAZOLE
     Indication: GASTROOESOPHAGEAL REFLUX DISEASE
     Dosage: 40 MG, 1X/DAY
     Route: 048
     Dates: start: 20190512
  8. GLASDEGIB [Suspect]
     Active Substance: GLASDEGIB
     Indication: ACUTE MYELOID LEUKAEMIA
     Dosage: ONCE DAILYCONTINUOUS
     Route: 048
     Dates: start: 20190417, end: 20190602
  9. CYTARABINE. [Suspect]
     Active Substance: CYTARABINE
     Indication: ACUTE MYELOID LEUKAEMIA
     Dosage: 2010 G, 2X/DAY, OVER 3 HOURS TWICE DAILY ON DAYS 1, 3, 5
     Route: 042
     Dates: start: 20190521, end: 20190526
  10. POSACONAZOLE [Concomitant]
     Active Substance: POSACONAZOLE
     Indication: ANTIFUNGAL PROPHYLAXIS
     Dosage: 400 MG, 1X/DAY
     Route: 048
     Dates: start: 20190513

REACTIONS (1)
  - Bacteraemia [Recovered/Resolved]

NARRATIVE: CASE EVENT DATE: 20190602
